FAERS Safety Report 8879526 (Version 3)
Quarter: 2014Q1

REPORT INFORMATION
  Report Type: Spontaneous
  Country: US (occurrence: None)
  Receive Date: 20120426
  Receipt Date: 20130107
  Transmission Date: 20141002
  Serious: Yes (Other)
  Sender: FDA-Public Use
  Company Number: PHEH2012US004378

PATIENT
  Age: 61 Year
  Sex: Female
  Weight: 77 kg

DRUGS (9)
  1. GILENYA [Suspect]
     Indication: MULTIPLE SCLEROSIS
     Route: 048
     Dates: start: 20110516, end: 20120217
  2. QUINAPRIL (QUINAPRIL) [Concomitant]
  3. OMEPRAZOLE (OMEPRAZOLE) [Concomitant]
  4. TIZANIDINE (TIZANIDINE) [Concomitant]
  5. METOPROLOL (METOPROLOL) [Concomitant]
  6. PROVIGIL (MODAFINIL) [Concomitant]
  7. ASPIRIN, 81 MG [Concomitant]
  8. FLUOXETINE (FLUOXETINE) [Concomitant]
  9. DILTIAZEM [Concomitant]

REACTIONS (5)
  - Visual acuity reduced [None]
  - Vision blurred [None]
  - Lymphocyte count decreased [None]
  - Eosinophil count increased [None]
  - Macular oedema [None]
